FAERS Safety Report 6983192-X (Version None)
Quarter: 2010Q3

REPORT INFORMATION
  Report Type: 
  Country: None (occurrence: None)
  Receive Date: 20100914
  Receipt Date: 20100623
  Transmission Date: 20110219
  Serious: No
  Sender: FDA-Public Use
  Company Number: US-PFIZER INC-2010079172

PATIENT
  Sex: Male
  Weight: 122 kg

DRUGS (10)
  1. LYRICA [Suspect]
     Indication: DIABETIC NEUROPATHY
     Dosage: 150MG IN MORNING AND 75MG AT BEDTIME
     Route: 048
     Dates: start: 20050101
  2. METFORMIN [Concomitant]
     Dosage: 500 MG, 2X/DAY
  3. TOPROL-XL [Concomitant]
     Dosage: 25 MG, 1X/DAY
  4. CALCITRIOL [Concomitant]
     Dosage: 0.25 MCG, UNK
  5. LASIX [Concomitant]
     Dosage: 40 MG, UNK
  6. FERROUS SULFATE TAB [Concomitant]
     Dosage: 325 MG, UNK
  7. ULTRAM [Concomitant]
     Dosage: 50 MG, UNK
  8. AMARYL [Concomitant]
     Dosage: UNK
  9. LORTAB [Concomitant]
     Dosage: UNK
  10. INSULIN [Concomitant]
     Dosage: UNK

REACTIONS (1)
  - PLATELET COUNT DECREASED [None]
